FAERS Safety Report 18545805 (Version 2)
Quarter: 2021Q1

REPORT INFORMATION
  Report Type: Report from Study
  Country: TW (occurrence: TW)
  Receive Date: 20201125
  Receipt Date: 20210303
  Transmission Date: 20210419
  Serious: Yes (Hospitalization, Other)
  Sender: FDA-Public Use
  Company Number: TW-GILEAD-2020-0494644

PATIENT
  Age: 53 Year
  Sex: Male
  Weight: 63.5 kg

DRUGS (4)
  1. ALINAMIN [FURSULTIAMINE HYDROCHLORIDE] [Concomitant]
     Indication: INTERVERTEBRAL DISC DEGENERATION
     Dosage: 1 UNK, UNK
     Route: 048
     Dates: start: 20200608
  2. TENOFOVIR ALAFENAMIDE [Suspect]
     Active Substance: TENOFOVIR ALAFENAMIDE
     Indication: CHRONIC HEPATITIS B
     Dosage: 25 MG
     Route: 048
     Dates: start: 20200509
  3. TRACETON [Concomitant]
     Indication: INTERVERTEBRAL DISC DEGENERATION
     Dosage: 1 UNK, UNK
     Route: 048
     Dates: start: 20200608
  4. VOKER [Concomitant]
     Indication: INTERVERTEBRAL DISC DEGENERATION
     Dosage: 1 UNK, UNK
     Route: 048
     Dates: start: 20180315

REACTIONS (3)
  - Peritonitis [Recovered/Resolved]
  - Sepsis [Recovered/Resolved]
  - Hepatocellular carcinoma [Not Recovered/Not Resolved]

NARRATIVE: CASE EVENT DATE: 20200810
